FAERS Safety Report 4701535-4 (Version None)
Quarter: 2005Q2

REPORT INFORMATION
  Report Type: 
  Country: None (occurrence: None)
  Receive Date: 20050627
  Receipt Date: 20050617
  Transmission Date: 20051028
  Serious: Yes (Death)
  Sender: FDA-Public Use
  Company Number: HQWYE524117JUN05

PATIENT
  Age: 69 Year
  Sex: Male

DRUGS (1)
  1. TAZOCIN (PIPERACILLIN/TAZOBACTAM, INJECTION) LOT NO: A86540 [Suspect]
     Indication: LUNG INFECTION
     Dosage: EVERY EIGHT HOURS, INTRAVENOUS
     Route: 042
     Dates: start: 20050612, end: 20050612

REACTIONS (3)
  - CHEST PAIN [None]
  - DYSPNOEA [None]
  - SEPTIC SHOCK [None]
